FAERS Safety Report 17466021 (Version 1)
Quarter: 2020Q1

REPORT INFORMATION
  Report Type: Spontaneous
  Country: FR (occurrence: FR)
  Receive Date: 20200227
  Receipt Date: 20200227
  Transmission Date: 20200409
  Serious: Yes (Hospitalization)
  Sender: FDA-Public Use
  Company Number: FR-TEVA-2020-FR-1191880

PATIENT
  Age: 62 Year
  Sex: Male

DRUGS (10)
  1. PREDNISOLONE. [Concomitant]
     Active Substance: PREDNISOLONE
     Dosage: 40 MILLIGRAM
     Route: 048
  2. KARDEGIC [Concomitant]
     Active Substance: ASPIRIN DL-LYSINE
     Dosage: 1 DOSAGE FORM
     Route: 048
  3. CISPLATINE [Concomitant]
     Active Substance: CISPLATIN
     Indication: PHARYNGEAL CANCER STAGE IV
     Dosage: UNSPECIFIED
     Route: 042
     Dates: start: 201909
  4. PARACETAMOL [Concomitant]
     Active Substance: ACETAMINOPHEN
     Dosage: 3 GRAM
     Route: 048
  5. TRIMEBUTINE [Concomitant]
     Active Substance: TRIMEBUTINE
     Dosage: NON RENSEIGNEE
     Route: 048
     Dates: start: 201909
  6. ERBITUX [Concomitant]
     Active Substance: CETUXIMAB
     Indication: PHARYNGEAL CANCER STAGE IV
     Dosage: UNSPECIFIED
     Route: 042
     Dates: start: 201909
  7. FLUOROURACILE [Suspect]
     Active Substance: FLUOROURACIL
     Indication: PHARYNGEAL CANCER
     Dosage: UNSPECIFIED
     Route: 042
     Dates: start: 201909
  8. ONDANSETRON [Concomitant]
     Active Substance: ONDANSETRON
     Dosage: 16 MILLIGRAM
     Route: 048
  9. SPASFON, COMPRIM? ENROB? [Concomitant]
     Dosage: 3 DOSAGE FORM
     Route: 048
  10. AUGMENTIN [Concomitant]
     Active Substance: AMOXICILLIN\CLAVULANATE POTASSIUM
     Dosage: 3 GRAM
     Route: 048
     Dates: start: 20191017

REACTIONS (1)
  - Extremity necrosis [Not Recovered/Not Resolved]

NARRATIVE: CASE EVENT DATE: 20191015
